FAERS Safety Report 19295790 (Version 1)
Quarter: 2021Q2

REPORT INFORMATION
  Report Type: Spontaneous
  Country: US (occurrence: US)
  Receive Date: 20210524
  Receipt Date: 20210524
  Transmission Date: 20210717
  Serious: No
  Sender: FDA-Public Use
  Company Number: US-PFIZER INC-2021209153

PATIENT
  Age: 61 Year
  Sex: Female

DRUGS (2)
  1. NIVESTYM [Suspect]
     Active Substance: FILGRASTIM-AAFI
     Indication: NEUTROPENIA
  2. NIVESTYM [Suspect]
     Active Substance: FILGRASTIM-AAFI
     Indication: BREAST CANCER
     Dosage: 480 UG, UNK

REACTIONS (1)
  - Malaise [Unknown]
